FAERS Safety Report 12997413 (Version 3)
Quarter: 2017Q2

REPORT INFORMATION
  Report Type: Spontaneous
  Country: US (occurrence: US)
  Receive Date: 20161205
  Receipt Date: 20170406
  Transmission Date: 20170830
  Serious: Yes (Hospitalization)
  Sender: FDA-Public Use
  Company Number: US-AUROBINDO-AUR-APL-2016-14863

PATIENT
  Age: 48 Year
  Sex: Male

DRUGS (2)
  1. MORPHINE [Suspect]
     Active Substance: MORPHINE
     Indication: PAIN
     Dosage: 2104 MG, UNK
     Route: 048
  2. METHADONE [Suspect]
     Active Substance: METHADONE HYDROCHLORIDE
     Indication: SUBSTANCE USE DISORDER
     Route: 065

REACTIONS (3)
  - Biliary dilatation [Recovered/Resolved]
  - Cholelithiasis [Recovered/Resolved]
  - Abdominal pain [Recovered/Resolved]
